FAERS Safety Report 26158387 (Version 1)
Quarter: 2025Q4

REPORT INFORMATION
  Report Type: Report from Study
  Country: EU (occurrence: None)
  Receive Date: 20251215
  Receipt Date: 20251215
  Transmission Date: 20260117
  Serious: Yes (Hospitalization, Other)
  Sender: UCB
  Company Number: EU-UCBSA-2025079076

PATIENT

DRUGS (4)
  1. BIMEKIZUMAB [Suspect]
     Active Substance: BIMEKIZUMAB
     Indication: Product used for unknown indication
     Dosage: 160 MILLIGRAM, UNK
  2. NAPROXEN [Concomitant]
     Active Substance: NAPROXEN
     Indication: Product used for unknown indication
     Dosage: 250 MILLIGRAM
  3. NAPROXEN [Concomitant]
     Active Substance: NAPROXEN
     Dosage: 125 MILLIGRAM
  4. NAPROXEN [Concomitant]
     Active Substance: NAPROXEN
     Dosage: 125 MILLIGRAM

REACTIONS (12)
  - Arthralgia [Unknown]
  - Cataract [Unknown]
  - Diabetes mellitus [Unknown]
  - Diarrhoea [Unknown]
  - Bronchitis [Unknown]
  - Chronic obstructive pulmonary disease [Unknown]
  - Claustrophobia [Unknown]
  - Cough [Unknown]
  - Depression [Unknown]
  - Pain [Unknown]
  - Paraesthesia [Unknown]
  - Axial spondyloarthritis [Unknown]
